FAERS Safety Report 14663635 (Version 9)
Quarter: 2019Q2

REPORT INFORMATION
  Report Type: Report from Study
  Country: KR (occurrence: KR)
  Receive Date: 20180321
  Receipt Date: 20190605
  Transmission Date: 20190711
  Serious: Yes (Hospitalization)
  Sender: FDA-Public Use
  Company Number: KR-ROCHE-2087893

PATIENT
  Age: 78 Year
  Sex: Male
  Weight: 61 kg

DRUGS (18)
  1. TANTUM [BENZYDAMINE HYDROCHLORIDE] [Concomitant]
     Indication: RETINOPATHY
     Route: 047
     Dates: start: 20170307
  2. TANTUM [BENZYDAMINE HYDROCHLORIDE] [Concomitant]
     Indication: STOMATITIS
     Route: 048
     Dates: start: 20180313
  3. SODIUM BICARBONATE. [Concomitant]
     Active Substance: SODIUM BICARBONATE
     Indication: STOMATITIS
     Route: 048
     Dates: start: 20180313
  4. BENPROPERINE [Concomitant]
     Active Substance: BENPROPERINE
     Indication: COUGH
     Route: 048
     Dates: start: 20180313, end: 20180318
  5. AMOSARTAN [Concomitant]
     Indication: HYPERTENSION
     Route: 048
     Dates: start: 2016
  6. FREAMINE III NOS [Concomitant]
     Active Substance: AMINO ACIDS
     Route: 042
     Dates: start: 20180307, end: 20180307
  7. ULTRACET [Concomitant]
     Active Substance: ACETAMINOPHEN\TRAMADOL HYDROCHLORIDE
     Indication: ANALGESIC THERAPY
     Route: 048
     Dates: start: 20180806
  8. COBIMETINIB. [Suspect]
     Active Substance: COBIMETINIB
     Route: 048
     Dates: start: 20180316
  9. DILATREND [Concomitant]
     Active Substance: CARVEDILOL
     Indication: HYPERTENSION
     Route: 048
     Dates: start: 2016
  10. ATEZOLIZUMAB. [Suspect]
     Active Substance: ATEZOLIZUMAB
     Indication: MALIGNANT MELANOMA
     Dosage: DATE OF MOST RECENT DOSE OF ATEZOLIZUMAB (840 MG) PRIOR TO THE ADVERSE EVENT: 26/FEB/2018,?MOST RECE
     Route: 041
     Dates: start: 20180226
  11. FURTMAN [Concomitant]
     Route: 013
     Dates: start: 20180313, end: 20180313
  12. LACTICARE ZEMAGIS [Concomitant]
     Indication: RASH
     Route: 061
     Dates: start: 20180314
  13. LOPERAMIDE [Concomitant]
     Active Substance: LOPERAMIDE
     Indication: DIARRHOEA
     Route: 048
     Dates: start: 20180307, end: 20180312
  14. LIDOMEX [Concomitant]
     Active Substance: PREDNISOLONE VALERATE ACETATE
     Route: 061
     Dates: start: 20180315
  15. KLENZO [Concomitant]
     Indication: STOMATITIS
     Route: 048
     Dates: start: 20180313
  16. COBIMETINIB. [Suspect]
     Active Substance: COBIMETINIB
     Indication: MALIGNANT MELANOMA
     Dosage: DATE OF MOST RECENT DOSE OF COBIMETINIB (60 MG) PRIOR TO ADVERSE EVENT: 06/MAR/2018
     Route: 048
     Dates: start: 20180226
  17. ENTELON [Concomitant]
     Indication: HYPERTENSION
     Route: 048
     Dates: start: 2016, end: 20180228
  18. BUPRENORPHINE. [Concomitant]
     Active Substance: BUPRENORPHINE
     Indication: ARTHRALGIA
     Dosage: TRANSDERMAL
     Route: 065
     Dates: start: 20180820, end: 20180904

REACTIONS (2)
  - Retinopathy [Recovered/Resolved]
  - Asthenia [Recovered/Resolved]

NARRATIVE: CASE EVENT DATE: 20180301
